FAERS Safety Report 12213381 (Version 1)
Quarter: 2016Q1

REPORT INFORMATION
  Report Type: Spontaneous
  Country: US (occurrence: None)
  Receive Date: 20160325
  Receipt Date: 20160325
  Transmission Date: 20160526
  Serious: Yes (Other)
  Sender: FDA-Public Use
  Company Number: None

PATIENT
  Age: 51 Year
  Sex: Female

DRUGS (1)
  1. HUMIRA [Suspect]
     Active Substance: ADALIMUMAB
     Indication: RHEUMATOID ARTHRITIS
     Dosage: 40 MG/0.8 ML PEN EVERY 2 WEEKS SUBCUTANEOUS
     Route: 058
     Dates: start: 20160212

REACTIONS (4)
  - Pruritus [None]
  - Rash [None]
  - Dyskinesia [None]
  - Urticaria [None]

NARRATIVE: CASE EVENT DATE: 20160219
